FAERS Safety Report 5825050-X (Version None)
Quarter: 2008Q3

REPORT INFORMATION
  Report Type: 
  Country: None (occurrence: None)
  Receive Date: 20080729
  Receipt Date: 20080718
  Transmission Date: 20090109
  Serious: No
  Sender: FDA-Public Use
  Company Number: NZ-ELI_LILLY_AND_COMPANY-NZ200807005017

PATIENT
  Age: 25 Year
  Sex: Male

DRUGS (4)
  1. ZYPREXA [Suspect]
     Dosage: 20 MG, UNK
     Route: 048
  2. ZYPREXA [Suspect]
     Dosage: 10 MG, UNK
     Route: 048
  3. VALPROATE SODIUM [Concomitant]
     Dosage: 2 G, UNK
  4. VALPROATE SODIUM [Concomitant]
     Dosage: 1.5 G, UNK

REACTIONS (3)
  - BLOOD PROLACTIN ABNORMAL [None]
  - NEUTROPENIA [None]
  - THROMBOCYTOPENIA [None]
